FAERS Safety Report 10264450 (Version 2)
Quarter: 2014Q3

REPORT INFORMATION
  Report Type: Report from Study
  Country: DE (occurrence: DE)
  Receive Date: 20140627
  Receipt Date: 20140915
  Transmission Date: 20150326
  Serious: Yes (Other)
  Sender: FDA-Public Use
  Company Number: DE-ABBVIE-14P-062-1250744-00

PATIENT
  Age: 24 Year
  Sex: Female
  Weight: 64 kg

DRUGS (9)
  1. METHOTREXATE [Suspect]
     Active Substance: METHOTREXATE
     Indication: CERVICAL DYSPLASIA
  2. METHOTREXATE [Suspect]
     Active Substance: METHOTREXATE
     Indication: CERVICAL DYSPLASIA
     Dates: start: 2004, end: 2006
  3. ETANERCEPT [Suspect]
     Active Substance: ETANERCEPT
     Indication: CERVICAL DYSPLASIA
     Dates: start: 200507, end: 200701
  4. ETANERCEPT [Suspect]
     Active Substance: ETANERCEPT
     Indication: CERVICAL DYSPLASIA
  5. HUMIRA [Suspect]
     Active Substance: ADALIMUMAB
     Route: 058
     Dates: start: 2014, end: 201405
  6. HUMIRA [Suspect]
     Active Substance: ADALIMUMAB
     Indication: JUVENILE IDIOPATHIC ARTHRITIS
     Route: 058
     Dates: start: 20070315, end: 201008
  7. HUMIRA [Suspect]
     Active Substance: ADALIMUMAB
     Route: 058
     Dates: start: 201008, end: 201012
  8. HUMIRA [Suspect]
     Active Substance: ADALIMUMAB
     Route: 058
     Dates: start: 201104, end: 2014
  9. HUMIRA [Suspect]
     Active Substance: ADALIMUMAB
     Dosage: 1 IN 2.5 WEEKS
     Route: 058
     Dates: start: 201012, end: 201104

REACTIONS (2)
  - Cervical dysplasia [Unknown]
  - Cervical dysplasia [Recovered/Resolved]

NARRATIVE: CASE EVENT DATE: 201210
